FAERS Safety Report 12815612 (Version 2)
Quarter: 2016Q4

REPORT INFORMATION
  Report Type: Spontaneous
  Country: JP (occurrence: JP)
  Receive Date: 20161005
  Receipt Date: 20161109
  Transmission Date: 20170207
  Serious: Yes (Hospitalization)
  Sender: FDA-Public Use
  Company Number: JP-MYLANLABS-2016M1041498

PATIENT

DRUGS (3)
  1. PROGRAF [Suspect]
     Active Substance: TACROLIMUS\TACROLIMUS ANHYDROUS
     Indication: PEMPHIGOID
     Route: 048
  2. BETAMETHASONE. [Suspect]
     Active Substance: BETAMETHASONE
     Indication: PEMPHIGOID
     Route: 048
  3. MIZORIBINE [Suspect]
     Active Substance: MIZORIBINE
     Indication: PEMPHIGOID
     Route: 048

REACTIONS (1)
  - Limbic encephalitis [Recovering/Resolving]
